FAERS Safety Report 8844123 (Version 1)
Quarter: 2012Q4

REPORT INFORMATION
  Report Type: 
  Country: CA (occurrence: CA)
  Receive Date: 20121016
  Receipt Date: 20121016
  Transmission Date: 20130627
  Serious: Yes (Other)
  Sender: FDA-Public Use
  Company Number: CA-JNJFOC-20120607425

PATIENT
  Age: 63 Year
  Sex: Female
  Weight: 54.8 kg

DRUGS (5)
  1. REMICADE [Suspect]
     Indication: RHEUMATOID ARTHRITIS
     Route: 042
     Dates: start: 20060204
  2. REMICADE [Suspect]
     Indication: RHEUMATOID ARTHRITIS
     Route: 042
     Dates: start: 200611, end: 201207
  3. MTX [Concomitant]
     Route: 058
  4. NAPROSYN [Concomitant]
     Route: 065
  5. TRAMACET [Concomitant]
     Route: 065

REACTIONS (1)
  - Joint arthroplasty [Recovering/Resolving]
